FAERS Safety Report 16724546 (Version 1)
Quarter: 2019Q3

REPORT INFORMATION
  Report Type: Spontaneous
  Country: US (occurrence: US)
  Receive Date: 20190704
  Receipt Date: 20190704
  Transmission Date: 20191005
  Serious: No
  Sender: FDA-Public Use
  Company Number: None

PATIENT
  Age: 48 Year
  Sex: Male

DRUGS (1)
  1. ABIRATERONE 250MG TAB [Suspect]
     Active Substance: ABIRATERONE
     Dosage: DATE OF USE 07/09/2019 GREATER THAN DATE OF EVENT
     Route: 048

REACTIONS (3)
  - Prostatomegaly [None]
  - Swelling [None]
  - Pain [None]

NARRATIVE: CASE EVENT DATE: 20190704
